FAERS Safety Report 14698048 (Version 1)
Quarter: 2018Q1

REPORT INFORMATION
  Report Type: Report from Study
  Country: IT (occurrence: IT)
  Receive Date: 20180330
  Receipt Date: 20180330
  Transmission Date: 20180509
  Serious: Yes (Hospitalization)
  Sender: FDA-Public Use
  Company Number: IT-ROCHE-2096803

PATIENT
  Age: 76 Year
  Sex: Male
  Weight: 64 kg

DRUGS (14)
  1. TAMSULOSINA [Concomitant]
     Active Substance: TAMSULOSIN HYDROCHLORIDE
     Indication: BENIGN PROSTATIC HYPERPLASIA
     Route: 065
     Dates: start: 2009
  2. OBINUTUZUMAB. [Suspect]
     Active Substance: OBINUTUZUMAB
     Indication: CHRONIC LYMPHOCYTIC LEUKAEMIA
     Dosage: INFUSION START TIME: 10:30 AND INFUSION STOP TIME: 14:30
     Route: 042
     Dates: start: 20160322
  3. ACP-196 [Suspect]
     Active Substance: ACALABRUTINIB
     Route: 065
     Dates: start: 20170419, end: 20170512
  4. BACTRIM [Concomitant]
     Active Substance: SULFAMETHOXAZOLE\TRIMETHOPRIM
     Dosage: BACTERIA INFECTION PROPHYLAXIS
     Route: 065
     Dates: start: 20160323
  5. NOVORAPID [Concomitant]
     Active Substance: INSULIN ASPART
     Indication: DIABETES MELLITUS
     Dosage: 10 U
     Route: 065
     Dates: start: 20090924
  6. OBINUTUZUMAB. [Suspect]
     Active Substance: OBINUTUZUMAB
     Dosage: INFUSION START TIME: 09:48 AND INFUSION STOP TIME: 13:00
     Route: 042
     Dates: start: 20160810, end: 20160810
  7. ACP-196 [Suspect]
     Active Substance: ACALABRUTINIB
     Route: 065
     Dates: start: 20171227
  8. SIMVASTATINA [Concomitant]
     Active Substance: SIMVASTATIN
     Indication: DYSLIPIDAEMIA
     Route: 065
     Dates: start: 2009
  9. ACP-196 [Suspect]
     Active Substance: ACALABRUTINIB
     Route: 065
     Dates: start: 20170712, end: 20171003
  10. ACP-196 [Suspect]
     Active Substance: ACALABRUTINIB
     Route: 065
     Dates: start: 20171004, end: 20171226
  11. ACP-196 [Suspect]
     Active Substance: ACALABRUTINIB
     Route: 065
     Dates: start: 20170514, end: 20170711
  12. ACP-196 [Suspect]
     Active Substance: ACALABRUTINIB
     Indication: CHRONIC LYMPHOCYTIC LEUKAEMIA
     Route: 065
     Dates: start: 20160222, end: 20170418
  13. ACP-196 [Suspect]
     Active Substance: ACALABRUTINIB
     Route: 065
     Dates: start: 20170513, end: 20170513
  14. LANTUS [Concomitant]
     Active Substance: INSULIN GLARGINE
     Indication: DIABETES MELLITUS
     Dosage: 7 U
     Route: 065
     Dates: start: 20090924

REACTIONS (1)
  - Inguinal hernia repair [Unknown]

NARRATIVE: CASE EVENT DATE: 20180226
